FAERS Safety Report 8055651-2 (Version None)
Quarter: 2011Q4

REPORT INFORMATION
  Report Type: 
  Country: None (occurrence: None)
  Receive Date: 20111214
  Receipt Date: 20110908
  Transmission Date: 20120403
  Serious: No
  Sender: FDA-Public Use
  Company Number: 20110655

PATIENT
  Age: 40 Year
  Sex: Male

DRUGS (1)
  1. KETOROLAC TROMETHAMINE [Suspect]
     Dosage: NASAL
     Route: 045

REACTIONS (2)
  - HYPERSENSITIVITY [None]
  - DYSPNOEA [None]
